FAERS Safety Report 14588835 (Version 1)
Quarter: 2018Q1

REPORT INFORMATION
  Report Type: Spontaneous
  Country: FR (occurrence: FR)
  Receive Date: 20180301
  Receipt Date: 20180301
  Transmission Date: 20180509
  Serious: Yes (Other)
  Sender: FDA-Public Use
  Company Number: FR-ALLERGAN-1811128US

PATIENT
  Age: 31 Year
  Sex: Female

DRUGS (1)
  1. TRIPTORELIN PAMOATE - BP [Suspect]
     Active Substance: TRIPTORELIN PAMOATE
     Indication: ENDOMETRIOSIS
     Dosage: UNK, SINGLE
     Route: 065
     Dates: start: 201610, end: 201704

REACTIONS (5)
  - Menorrhagia [Recovered/Resolved]
  - Pain [Unknown]
  - Off label use [Unknown]
  - Exposure during pregnancy [Unknown]
  - Fibroma [Recovered/Resolved]

NARRATIVE: CASE EVENT DATE: 201707
